FAERS Safety Report 6563137-7 (Version None)
Quarter: 2010Q1

REPORT INFORMATION
  Report Type: 
  Country: None (occurrence: None)
  Receive Date: 20100130
  Receipt Date: 20091202
  Transmission Date: 20100710
  Serious: No
  Sender: FDA-Public Use
  Company Number: US-ABBOTT-09P-163-0612107-00

PATIENT
  Age: 30 Year
  Sex: Female
  Weight: 57.658 kg

DRUGS (1)
  1. HUMIRA [Suspect]
     Indication: CROHN'S DISEASE
     Dates: start: 20090915, end: 20090924

REACTIONS (6)
  - ALOPECIA [None]
  - ARTHRALGIA [None]
  - DEPRESSION [None]
  - FATIGUE [None]
  - MUSCULAR WEAKNESS [None]
  - MYALGIA [None]
